FAERS Safety Report 20566861 (Version 1)
Quarter: 2022Q1

REPORT INFORMATION
  Report Type: Other
  Country: US (occurrence: None)
  Receive Date: 20220308
  Receipt Date: 20220308
  Transmission Date: 20220423
  Serious: No
  Sender: FDA-Public Use
  Company Number: US-ROCHE-3036910

PATIENT
  Sex: Female
  Weight: 51.756 kg

DRUGS (1)
  1. OCREVUS [Suspect]
     Active Substance: OCRELIZUMAB
     Indication: Relapsing-remitting multiple sclerosis
     Dosage: INFUSE 600 MG IV EVERY 6 MONTHS
     Route: 042
     Dates: start: 20220114

REACTIONS (10)
  - COVID-19 [Recovered/Resolved]
  - Headache [Unknown]
  - Muscle spasms [Unknown]
  - Chest pain [Unknown]
  - Abdominal distension [Unknown]
  - Flatulence [Unknown]
  - Malaise [Unknown]
  - Asthenia [Unknown]
  - Sluggishness [Unknown]
  - Breast pain [Unknown]
